FAERS Safety Report 16658632 (Version 1)
Quarter: 2019Q3

REPORT INFORMATION
  Report Type: Report from Study
  Country: IT (occurrence: IT)
  Receive Date: 20190801
  Receipt Date: 20190801
  Transmission Date: 20191004
  Serious: Yes (Other)
  Sender: FDA-Public Use
  Company Number: IT-MYLANLABS-2019M1072371

PATIENT
  Age: 83 Year
  Sex: Male

DRUGS (4)
  1. MADOPAR [Concomitant]
     Active Substance: BENSERAZIDE HYDROCHLORIDE\LEVODOPA
     Dosage: UNK
  2. ZOLPIDEM [Suspect]
     Active Substance: ZOLPIDEM TARTRATE
     Indication: INSOMNIA
     Dosage: 2 DOSAGE FORM, TOTAL
     Route: 060
     Dates: start: 20190209, end: 20190209
  3. MIRAPEXIN [Concomitant]
     Active Substance: PRAMIPEXOLE
     Dosage: 1 DOSAGE FORM
     Route: 048
  4. SIRIO [Concomitant]
     Active Substance: CARBIDOPA\MELEVODOPA
     Dosage: 2 DOSAGE FORM
     Route: 048

REACTIONS (2)
  - Hallucination, visual [Recovering/Resolving]
  - Psychomotor hyperactivity [Recovering/Resolving]

NARRATIVE: CASE EVENT DATE: 20190210
